FAERS Safety Report 9298914 (Version 1)
Quarter: 2013Q2

REPORT INFORMATION
  Report Type: Spontaneous
  Country: US (occurrence: US)
  Receive Date: 20130520
  Receipt Date: 20130520
  Transmission Date: 20140414
  Serious: No
  Sender: FDA-Public Use
  Company Number: US-SANOFI-AVENTIS-2012SA061548

PATIENT
  Sex: Female

DRUGS (2)
  1. APIDRA [Suspect]
     Dosage: DOSE:10 UNIT(S)
     Route: 058
     Dates: start: 20120822
  2. LEVEMIR INSULIN [Concomitant]
     Dosage: DOSE:30 UNIT(S)

REACTIONS (4)
  - Malaise [Unknown]
  - Nausea [Unknown]
  - Hyperglycaemia [Unknown]
  - Hypoglycaemia [Unknown]
